FAERS Safety Report 6835133-3 (Version None)
Quarter: 2010Q3

REPORT INFORMATION
  Report Type: 
  Country: None (occurrence: None)
  Receive Date: 20100713
  Receipt Date: 20100701
  Transmission Date: 20110219
  Serious: No
  Sender: FDA-Public Use
  Company Number: US-BIOGENIDEC-2010BI022975

PATIENT
  Sex: Female

DRUGS (2)
  1. TYSABRI [Suspect]
     Indication: MULTIPLE SCLEROSIS
     Route: 042
     Dates: start: 20070926, end: 20081231
  2. TYSABRI [Suspect]
     Route: 042
     Dates: start: 20090609

REACTIONS (2)
  - FATIGUE [None]
  - NEUROPATHY PERIPHERAL [None]
